FAERS Safety Report 9332669 (Version 2)
Quarter: 2013Q2

REPORT INFORMATION
  Report Type: Spontaneous
  Country: US (occurrence: US)
  Receive Date: 20130606
  Receipt Date: 20130625
  Transmission Date: 20140414
  Serious: Yes (Hospitalization)
  Sender: FDA-Public Use
  Company Number: US-ROCHE-1231293

PATIENT
  Age: 57 Year
  Sex: Female

DRUGS (1)
  1. ERIVEDGE [Suspect]
     Indication: BASAL CELL CARCINOMA
     Route: 048
     Dates: start: 20130125

REACTIONS (4)
  - Abdominal pain [Unknown]
  - Alopecia [Unknown]
  - Diarrhoea [Unknown]
  - Groin pain [Unknown]
